FAERS Safety Report 6682746-8 (Version None)
Quarter: 2010Q2

REPORT INFORMATION
  Report Type: 
  Country: None (occurrence: None)
  Receive Date: 20100415
  Receipt Date: 20100409
  Transmission Date: 20101027
  Serious: Yes (Death, Life-Threatening, Hospitalization, Other)
  Sender: FDA-Public Use
  Company Number: TR-ELI_LILLY_AND_COMPANY-TR201003006729

PATIENT
  Age: 62 Year
  Sex: Female

DRUGS (3)
  1. HUMALOG [Suspect]
     Indication: DIABETES MELLITUS
     Dosage: 25 U, 2/D
     Route: 058
     Dates: start: 20080101
  2. MONODUR [Concomitant]
     Indication: CARDIAC DISORDER
     Dosage: 60 MG, DAILY (1/D)
     Route: 065
     Dates: start: 20000101
  3. ANTIHYPERTENSIVES [Concomitant]
     Indication: HYPERTENSION
     Dosage: UNK, UNKNOWN
     Route: 065

REACTIONS (3)
  - ASTHMATIC CRISIS [None]
  - BLOOD GLUCOSE INCREASED [None]
  - RESPIRATORY FAILURE [None]
